FAERS Safety Report 10973137 (Version 5)
Quarter: 2015Q3

REPORT INFORMATION
  Report Type: Report from Study
  Country: CA (occurrence: CA)
  Receive Date: 20150401
  Receipt Date: 20150918
  Transmission Date: 20151125
  Serious: Yes (Other)
  Sender: FDA-Public Use
  Company Number: CA-ROCHE-1281081

PATIENT
  Age: 68 Year
  Sex: Female
  Weight: 80 kg

DRUGS (17)
  1. ADVAIR HFA [Concomitant]
     Active Substance: FLUTICASONE PROPIONATE\SALMETEROL XINAFOATE
  2. ACTEMRA [Suspect]
     Active Substance: TOCILIZUMAB
     Route: 042
     Dates: start: 20130925
  3. ACTEMRA [Suspect]
     Active Substance: TOCILIZUMAB
     Route: 042
  4. AERIUS (CANADA) [Concomitant]
  5. TEGRETOL [Concomitant]
     Active Substance: CARBAMAZEPINE
  6. AMLODIPINE [Concomitant]
     Active Substance: AMLODIPINE BESYLATE
  7. ACTEMRA [Suspect]
     Active Substance: TOCILIZUMAB
     Route: 042
     Dates: start: 20150109
  8. PREDNISONE. [Concomitant]
     Active Substance: PREDNISONE
  9. VENTOLIN [Concomitant]
     Active Substance: ALBUTEROL SULFATE
     Route: 065
  10. ACTEMRA [Suspect]
     Active Substance: TOCILIZUMAB
     Indication: RHEUMATOID ARTHRITIS
     Route: 042
     Dates: start: 20130724
  11. PANTOLOC [Concomitant]
     Active Substance: PANTOPRAZOLE SODIUM
  12. CRESTOR [Concomitant]
     Active Substance: ROSUVASTATIN CALCIUM
  13. CLOBAZAM [Concomitant]
     Active Substance: CLOBAZAM
  14. BABY ASPIRIN [Concomitant]
     Active Substance: ASPIRIN
  15. ATACAND PLUS [Concomitant]
     Active Substance: CANDESARTAN CILEXETIL\HYDROCHLOROTHIAZIDE
  16. ACTONEL [Concomitant]
     Active Substance: RISEDRONATE SODIUM
  17. FOLIC ACID. [Concomitant]
     Active Substance: FOLIC ACID

REACTIONS (23)
  - Arthralgia [Not Recovered/Not Resolved]
  - Bronchitis [Not Recovered/Not Resolved]
  - Arthritis [Not Recovered/Not Resolved]
  - Stress [Recovered/Resolved]
  - Sensory disturbance [Not Recovered/Not Resolved]
  - Pneumonia [Not Recovered/Not Resolved]
  - Musculoskeletal pain [Not Recovered/Not Resolved]
  - Blood pressure increased [Unknown]
  - Infusion related reaction [Unknown]
  - Blood pressure increased [Recovered/Resolved]
  - Tooth infection [Not Recovered/Not Resolved]
  - Road traffic accident [Unknown]
  - Weight increased [Unknown]
  - Arthralgia [Not Recovered/Not Resolved]
  - Hypoaesthesia [Not Recovered/Not Resolved]
  - Joint swelling [Unknown]
  - Hypersensitivity [Not Recovered/Not Resolved]
  - Total lung capacity decreased [Not Recovered/Not Resolved]
  - Physical assault [Unknown]
  - Headache [Recovered/Resolved]
  - Rheumatoid arthritis [Unknown]
  - Erythema [Not Recovered/Not Resolved]
  - Ovarian cyst [Not Recovered/Not Resolved]

NARRATIVE: CASE EVENT DATE: 201308
